FAERS Safety Report 4409288-4 (Version None)
Quarter: 2004Q3

REPORT INFORMATION
  Report Type: 
  Country: None (occurrence: None)
  Receive Date: 20040722
  Receipt Date: 20040709
  Transmission Date: 20050211
  Serious: Yes (Other)
  Sender: FDA-Public Use
  Company Number: US-JNJFOC-20040703174

PATIENT
  Age: 54 Year
  Sex: Female

DRUGS (3)
  1. INFLIXIMAB              (INFLIXIMAB, RECOMBINANT) [Suspect]
     Indication: RHEUMATOID ARTHRITIS
     Dosage: 5 MG'KG, 1 IN 6 WEEK, INTRAVENOUS
     Route: 042
     Dates: start: 20021201
  2. METHOTREXATE [Concomitant]
  3. HYDROCHLOROQUINE (HYDROCHLOROQUINE) [Concomitant]

REACTIONS (4)
  - COCCIDIOIDOMYCOSIS [None]
  - CONDITION AGGRAVATED [None]
  - LOBAR PNEUMONIA [None]
  - RHEUMATOID ARTHRITIS [None]
